FAERS Safety Report 10376037 (Version 2)
Quarter: 2015Q2

REPORT INFORMATION
  Report Type: Spontaneous
  Country: US (occurrence: US)
  Receive Date: 20140811
  Receipt Date: 20150603
  Transmission Date: 20150821
  Serious: Yes (Hospitalization, Other)
  Sender: FDA-Public Use
  Company Number: US-GLAXOSMITHKLINE-A1083741A

PATIENT
  Age: 80 Year
  Sex: Female

DRUGS (5)
  1. MIRTAZAPINE. [Concomitant]
     Active Substance: MIRTAZAPINE
  2. LAMICTAL [Suspect]
     Active Substance: LAMOTRIGINE
     Indication: BIPOLAR DISORDER
     Dosage: 300 MG, QD
     Route: 048
     Dates: start: 2011
  3. CLONAZEPAM. [Concomitant]
     Active Substance: CLONAZEPAM
  4. LAMICTAL [Suspect]
     Active Substance: LAMOTRIGINE
     Indication: BIPOLAR I DISORDER
     Dosage: 300 MG
     Route: 048
     Dates: start: 2007
  5. CITALOPRAM [Concomitant]
     Active Substance: CITALOPRAM HYDROBROMIDE

REACTIONS (7)
  - Arthropathy [Unknown]
  - Ill-defined disorder [Recovered/Resolved]
  - Arthritis [Unknown]
  - Arthropathy [Recovered/Resolved]
  - Therapeutic response unexpected [Unknown]
  - Knee arthroplasty [Not Recovered/Not Resolved]
  - Knee operation [Recovered/Resolved]

NARRATIVE: CASE EVENT DATE: 201408
